FAERS Safety Report 12928060 (Version 1)
Quarter: 2016Q4

REPORT INFORMATION
  Report Type: Spontaneous
  Country: US (occurrence: US)
  Receive Date: 20161110
  Receipt Date: 20161110
  Transmission Date: 20170207
  Serious: No
  Sender: FDA-Public Use
  Company Number: US-ASTRAZENECA-2016SF15229

PATIENT

DRUGS (6)
  1. QBAR INHALER [Concomitant]
  2. NEBULIZER [Concomitant]
     Active Substance: DEVICE
  3. DALIRESP [Suspect]
     Active Substance: ROFLUMILAST
     Route: 048
  4. SPIRIVA [Concomitant]
     Active Substance: TIOTROPIUM BROMIDE MONOHYDRATE
  5. RESCUE INHALER [Concomitant]
  6. OXYGEN. [Concomitant]
     Active Substance: OXYGEN
     Dosage: AT NIGHT

REACTIONS (1)
  - Oxygen saturation decreased [Unknown]
